FAERS Safety Report 23528504 (Version 3)
Quarter: 2025Q4

REPORT INFORMATION
  Report Type: Spontaneous
  Country: JP (occurrence: JP)
  Receive Date: 20240215
  Receipt Date: 20251008
  Transmission Date: 20260118
  Serious: Yes (Hospitalization)
  Sender: EISAI
  Company Number: JP-Eisai-202313934_LEN-EC_P_1

PATIENT
  Age: 65 Year
  Sex: Female

DRUGS (3)
  1. LENVIMA [Suspect]
     Active Substance: LENVATINIB
     Indication: Endometrial cancer recurrent
     Route: 048
  2. KEYTRUDA [Concomitant]
     Active Substance: PEMBROLIZUMAB
     Indication: Endometrial cancer recurrent
     Dosage: DOSE AND FREQUENCY UNKNOWN.
     Route: 042
  3. KEYTRUDA [Concomitant]
     Active Substance: PEMBROLIZUMAB
     Dosage: DOSE AND FREQUENCY UNKNOWN.
     Route: 042

REACTIONS (1)
  - Large intestine perforation [Recovered/Resolved]
